FAERS Safety Report 9250629 (Version 1)
Quarter: 2013Q1

REPORT INFORMATION
  Report Type: Spontaneous
  Country: US (occurrence: None)
  Receive Date: 20130305
  Receipt Date: 20130305
  Transmission Date: 20140127
  Serious: Yes (Other)
  Sender: FDA-Public Use
  Company Number: 163-21880-12040331

PATIENT
  Age: 64 Year
  Sex: Female
  Weight: 52.16 kg

DRUGS (1)
  1. REVLIMID (LENALIDOMIDE) (CAPSULES) [Suspect]
     Indication: PLASMA CELL MYELOMA
     Route: 048
     Dates: start: 200910, end: 2009

REACTIONS (4)
  - Thrombocytopenia [None]
  - Constipation [None]
  - Diarrhoea [None]
  - Oedema peripheral [None]
